FAERS Safety Report 18527135 (Version 3)
Quarter: 2020Q4

REPORT INFORMATION
  Report Type: Spontaneous
  Country: ES (occurrence: ES)
  Receive Date: 20201120
  Receipt Date: 20201229
  Transmission Date: 20210114
  Serious: Yes (Other)
  Sender: FDA-Public Use
  Company Number: ES-ALK-ABELLO A/S-2020AA003851

PATIENT

DRUGS (4)
  1. PHARMALGEN 801 [Suspect]
     Active Substance: APIS MELLIFERA
     Indication: PRODUCT USED FOR UNKNOWN INDICATION
     Dosage: 100 MICROGRAM
     Dates: start: 2019
  2. PHARMALGEN 801 [Suspect]
     Active Substance: APIS MELLIFERA
     Dosage: UNK
     Dates: start: 2019
  3. DIANBEN [Concomitant]
     Active Substance: METFORMIN HYDROCHLORIDE
  4. INSULINE NORDISK [Concomitant]

REACTIONS (4)
  - Allergy to arthropod sting [Unknown]
  - Eyelid oedema [Unknown]
  - Pruritus [Recovered/Resolved]
  - Anaphylactic reaction [Recovered/Resolved]

NARRATIVE: CASE EVENT DATE: 2020
